FAERS Safety Report 10240959 (Version 1)
Quarter: 2014Q2

REPORT INFORMATION
  Report Type: Spontaneous
  Country: US (occurrence: US)
  Receive Date: 20140617
  Receipt Date: 20140617
  Transmission Date: 20141212
  Serious: Yes (Other)
  Sender: FDA-Public Use
  Company Number: US-SA-2014SA076904

PATIENT
  Age: 50 Year
  Sex: Female

DRUGS (5)
  1. AUBAGIO [Suspect]
     Indication: MULTIPLE SCLEROSIS
     Route: 065
     Dates: start: 201405
  2. CELEXA [Concomitant]
  3. CYMBALTA [Concomitant]
  4. DETROL [Concomitant]
  5. NEURONTIN [Concomitant]

REACTIONS (1)
  - Haemorrhage [Unknown]
